FAERS Safety Report 18843701 (Version 1)
Quarter: 2021Q1

REPORT INFORMATION
  Report Type: Spontaneous
  Country: FR (occurrence: FR)
  Receive Date: 20210203
  Receipt Date: 20210203
  Transmission Date: 20210419
  Serious: No
  Sender: FDA-Public Use
  Company Number: FR-EXELIXIS-CABO-20027868

PATIENT
  Age: 70 Year
  Sex: Female

DRUGS (1)
  1. CABOMETYX [Suspect]
     Active Substance: CABOZANTINIB S-MALATE
     Indication: RENAL CANCER
     Dosage: 40 MG
     Dates: start: 20200227

REACTIONS (3)
  - Dizziness [Unknown]
  - Nervousness [Unknown]
  - Anxiety [Unknown]

NARRATIVE: CASE EVENT DATE: 20200227
